FAERS Safety Report 9688712 (Version 2)
Quarter: 2013Q4

REPORT INFORMATION
  Report Type: Report from Study
  Country: GB (occurrence: GB)
  Receive Date: 20131114
  Receipt Date: 20131123
  Transmission Date: 20140711
  Serious: Yes (Hospitalization, Other)
  Sender: FDA-Public Use
  Company Number: PHHY2013GB128804

PATIENT
  Sex: 0

DRUGS (10)
  1. OXALIPLATIN [Suspect]
     Indication: COLORECTAL CANCER METASTATIC
     Dosage: UNK
  2. IRINOTECAN [Suspect]
     Indication: COLORECTAL CANCER METASTATIC
     Dosage: UNK
  3. FLUOROURACIL [Suspect]
     Indication: COLORECTAL CANCER METASTATIC
     Dosage: UNK
     Route: 042
  4. FLUOROURACIL [Suspect]
     Dosage: UNK
     Route: 040
  5. FLUOROURACIL [Suspect]
     Route: 042
  6. FLUOROURACIL [Suspect]
     Route: 040
  7. CAPECITABINE [Suspect]
     Indication: COLORECTAL CANCER METASTATIC
  8. CALCIUM FOLINATE [Suspect]
     Indication: COLORECTAL CANCER METASTATIC
     Dosage: UNK
     Route: 042
  9. CALCIUM FOLINATE [Suspect]
     Route: 042
  10. AVASTIN [Suspect]
     Indication: BREAST CANCER METASTATIC

REACTIONS (2)
  - Bacterial infection [Unknown]
  - Blood culture positive [Unknown]
